FAERS Safety Report 21008880 (Version 1)
Quarter: 2022Q2

REPORT INFORMATION
  Report Type: Spontaneous
  Country: CA (occurrence: CA)
  Receive Date: 20220627
  Receipt Date: 20220627
  Transmission Date: 20220721
  Serious: Yes (Other)
  Sender: FDA-Public Use
  Company Number: CA-TEVA-2022-CA-2048407

PATIENT
  Age: 83 Year
  Sex: Male

DRUGS (3)
  1. FENTANYL [Suspect]
     Active Substance: FENTANYL
     Indication: Product used for unknown indication
     Route: 065
  2. MIDAZOLAM [Suspect]
     Active Substance: MIDAZOLAM
     Indication: Product used for unknown indication
     Route: 065
  3. HURRICAINE [Concomitant]
     Active Substance: BENZOCAINE
     Indication: Product used for unknown indication

REACTIONS (4)
  - Aspiration [Unknown]
  - Hypoxia [Unknown]
  - Oxygen therapy [Unknown]
  - Chest X-ray abnormal [Unknown]
